FAERS Safety Report 18201643 (Version 1)
Quarter: 2020Q3

REPORT INFORMATION
  Report Type: Spontaneous
  Country: US (occurrence: US)
  Receive Date: 20200826
  Receipt Date: 20200826
  Transmission Date: 20201103
  Serious: No
  Sender: FDA-Public Use
  Company Number: None

PATIENT
  Age: 42 Year
  Sex: Female

DRUGS (1)
  1. PERRIGO ALBUTEROL SULFATE 8.5G 200 METERED INHALATIONS [Suspect]
     Active Substance: ALBUTEROL SULFATE
     Indication: ASTHMA
     Dosage: ?          QUANTITY:1 INHALATION(S);?
     Route: 055
     Dates: start: 20200821

REACTIONS (5)
  - Device defective [None]
  - Insurance issue [None]
  - Product taste abnormal [None]
  - Asthma [None]
  - Drug ineffective [None]

NARRATIVE: CASE EVENT DATE: 20200824
